FAERS Safety Report 5236348-0 (Version None)
Quarter: 2007Q1

REPORT INFORMATION
  Report Type: 
  Country: None (occurrence: None)
  Receive Date: 20070208
  Receipt Date: 20070131
  Transmission Date: 20070707
  Serious: Yes (Other)
  Sender: FDA-Public Use
  Company Number: SPV1-2007-00439

PATIENT
  Age: 6 Year
  Sex: Male

DRUGS (2)
  1. ADDERALL XR 15 [Suspect]
     Dosage: 10 MG, 1X/DAY;QD, ORAL
     Route: 048
  2. CONCERTA [Concomitant]

REACTIONS (4)
  - EUPHORIC MOOD [None]
  - HYPOMANIA [None]
  - INSOMNIA [None]
  - PSYCHOMOTOR HYPERACTIVITY [None]
